FAERS Safety Report 13294329 (Version 2)
Quarter: 2017Q1

REPORT INFORMATION
  Report Type: Spontaneous
  Country: US (occurrence: US)
  Receive Date: 20170303
  Receipt Date: 20170331
  Transmission Date: 20170428
  Serious: Yes (Hospitalization, Other)
  Sender: FDA-Public Use
  Company Number: US-ELI_LILLY_AND_COMPANY-US201702011830

PATIENT
  Sex: Female

DRUGS (1)
  1. HUMULIN R [Suspect]
     Active Substance: INSULIN HUMAN
     Indication: DIABETES MELLITUS
     Dosage: UNK UNK, UNKNOWN
     Route: 058
     Dates: start: 2009

REACTIONS (10)
  - Pain in extremity [Unknown]
  - Cataract [Unknown]
  - Wrong technique in product usage process [Unknown]
  - Paraesthesia [Unknown]
  - Nail discomfort [Unknown]
  - Blood glucose increased [Recovered/Resolved]
  - Breast cancer [Recovered/Resolved]
  - Neuropathy peripheral [Unknown]
  - Blood glucose decreased [Recovered/Resolved]
  - Eye haemorrhage [Unknown]

NARRATIVE: CASE EVENT DATE: 2016
